FAERS Safety Report 9305691 (Version 1)
Quarter: 2013Q2

REPORT INFORMATION
  Report Type: Spontaneous
  Country: FR (occurrence: None)
  Receive Date: 20130501
  Receipt Date: 20130501
  Transmission Date: 20140414
  Serious: Yes (Other)
  Sender: FDA-Public Use
  Company Number: 2013035326

PATIENT
  Age: 27 Year
  Sex: Female

DRUGS (1)
  1. RHOPHYLAC [Suspect]
     Indication: PROPHYLAXIS AGAINST RH ISOIMMUNISATION
     Route: 030
     Dates: start: 20130329

REACTIONS (2)
  - Drug administration error [None]
  - No adverse event [None]
